FAERS Safety Report 21669878 (Version 2)
Quarter: 2022Q4

REPORT INFORMATION
  Report Type: Report from Study
  Country: AU (occurrence: AU)
  Receive Date: 20221201
  Receipt Date: 20221207
  Transmission Date: 20230112
  Serious: Yes (Other)
  Sender: FDA-Public Use
  Company Number: AU-BAYER-2022P023130

PATIENT
  Age: 57 Year
  Sex: Male

DRUGS (1)
  1. VERICIGUAT HYDROCHLORIDE [Suspect]
     Active Substance: VERICIGUAT HYDROCHLORIDE
     Indication: Cardiac failure
     Dosage: 2.5 MILLIGRAM, QD
     Route: 048
     Dates: start: 202210

REACTIONS (3)
  - Dizziness [Recovered/Resolved]
  - Blood pressure decreased [Recovered/Resolved]
  - Blood glucose increased [Recovered/Resolved]

NARRATIVE: CASE EVENT DATE: 20221115
